FAERS Safety Report 5897869-0 (Version None)
Quarter: 2008Q3

REPORT INFORMATION
  Report Type: 
  Country: None (occurrence: None)
  Receive Date: 20080925
  Receipt Date: 20080924
  Transmission Date: 20090109
  Serious: Yes (Other)
  Sender: FDA-Public Use
  Company Number: A0698987A

PATIENT
  Sex: Female

DRUGS (1)
  1. ALLI [Suspect]
     Route: 048
     Dates: start: 20071101

REACTIONS (24)
  - BACK INJURY [None]
  - CONSTIPATION [None]
  - DRUG INEFFECTIVE [None]
  - DYSPHAGIA [None]
  - DYSPNOEA [None]
  - DYSPNOEA EXERTIONAL [None]
  - FATIGUE [None]
  - FOOD CRAVING [None]
  - GAIT DISTURBANCE [None]
  - GASTROINTESTINAL DISORDER [None]
  - HYPERPHAGIA [None]
  - HYPERSENSITIVITY [None]
  - HYPOTHYROIDISM [None]
  - OROPHARYNGEAL PAIN [None]
  - PAIN [None]
  - RECTAL DISCHARGE [None]
  - STEATORRHOEA [None]
  - SWELLING [None]
  - SWOLLEN TONGUE [None]
  - THERAPEUTIC RESPONSE UNEXPECTED [None]
  - THROAT TIGHTNESS [None]
  - THYROIDITIS [None]
  - WEIGHT FLUCTUATION [None]
  - WEIGHT INCREASED [None]
